FAERS Safety Report 16172666 (Version 1)
Quarter: 2019Q2

REPORT INFORMATION
  Report Type: Spontaneous
  Country: US (occurrence: US)
  Receive Date: 20190409
  Receipt Date: 20190409
  Transmission Date: 20190711
  Serious: Yes (Other)
  Sender: FDA-Public Use
  Company Number: US-HORMOSAN PHARMA GMBH-2019-01996

PATIENT
  Sex: Female

DRUGS (6)
  1. LYRICA [Concomitant]
     Active Substance: PREGABALIN
     Indication: ARTHRALGIA
     Dosage: 1 DOSAGE FORM, TID
     Route: 065
  2. TIZANIDINE. [Concomitant]
     Active Substance: TIZANIDINE
     Indication: HYPOAESTHESIA
  3. TIZANIDINE. [Concomitant]
     Active Substance: TIZANIDINE
     Indication: ARTHRALGIA
     Dosage: 1 DOSAGE FORM, TID
     Route: 065
  4. DULOXETINE DELAYED-RELEASE DELAYED-RELEASE [Suspect]
     Active Substance: DULOXETINE HYDROCHLORIDE
     Indication: HYPOAESTHESIA
  5. LYRICA [Concomitant]
     Active Substance: PREGABALIN
     Indication: HYPOAESTHESIA
  6. DULOXETINE DELAYED-RELEASE DELAYED-RELEASE [Suspect]
     Active Substance: DULOXETINE HYDROCHLORIDE
     Indication: ARTHRALGIA
     Dosage: 1 DOSAGE FORM, QD (IN THE MORNING)
     Route: 065

REACTIONS (3)
  - Facet joint syndrome [Unknown]
  - Intervertebral disc protrusion [Unknown]
  - Spondylolisthesis [Unknown]
